FAERS Safety Report 4808532-9 (Version None)
Quarter: 2005Q4

REPORT INFORMATION
  Report Type: 
  Country: None (occurrence: None)
  Receive Date: 20051025
  Receipt Date: 20051013
  Transmission Date: 20060501
  Serious: Yes (Death, Hospitalization)
  Sender: FDA-Public Use
  Company Number: PHHO2005BR16276

PATIENT
  Age: 70 Year
  Sex: Female

DRUGS (3)
  1. EUTHYROX [Concomitant]
     Indication: THYROID DISORDER
  2. DAONIL [Concomitant]
     Indication: DIABETES MELLITUS
     Dosage: 5 MG, UNK
  3. DIOVAN HCT [Suspect]
     Indication: HYPERTENSION
     Dosage: VALS 160 / HCT 12.5MG, QD
     Route: 048

REACTIONS (3)
  - CARDIAC FAILURE [None]
  - PULMONARY EMBOLISM [None]
  - RESPIRATORY DISORDER [None]
